FAERS Safety Report 6509403-2 (Version None)
Quarter: 2009Q4

REPORT INFORMATION
  Report Type: 
  Country: None (occurrence: None)
  Receive Date: 20091222
  Receipt Date: 20091214
  Transmission Date: 20100525
  Serious: Yes (Hospitalization)
  Sender: FDA-Public Use
  Company Number: JP-ALLERGAN-0916333US

PATIENT
  Age: 82 Year
  Sex: Female
  Weight: 45 kg

DRUGS (3)
  1. BOTOX [Suspect]
     Indication: TORTICOLLIS
     Dosage: 60 UNITS, SINGLE
     Route: 030
     Dates: start: 20080430, end: 20080430
  2. LANDSEN [Concomitant]
     Indication: TORTICOLLIS
     Dosage: 1.5 MG, QD
     Route: 048
     Dates: start: 20080317
  3. MYONAL [Concomitant]
     Indication: TORTICOLLIS
     Dosage: 100 MG, QD
     Route: 048
     Dates: start: 20080409

REACTIONS (1)
  - ASTHMA [None]
